FAERS Safety Report 5570031-7 (Version None)
Quarter: 2007Q4

REPORT INFORMATION
  Report Type: 
  Country: None (occurrence: None)
  Receive Date: 20071220
  Receipt Date: 20071205
  Transmission Date: 20080405
  Serious: Yes (Death, Hospitalization)
  Sender: FDA-Public Use
  Company Number: AU-GENENTECH-232800

PATIENT
  Sex: Female

DRUGS (2)
  1. BEVACIZUMAB [Suspect]
     Indication: COLORECTAL CANCER
     Dosage: 532 MG, Q3W
     Route: 042
     Dates: start: 20061004
  2. CAPECITABINE [Suspect]
     Indication: COLORECTAL CANCER
     Dosage: 1.2 MG/M2, D1-14/Q3W
     Route: 048
     Dates: start: 20061004

REACTIONS (1)
  - SEPTIC SHOCK [None]
